FAERS Safety Report 5696518-4 (Version None)
Quarter: 2008Q2

REPORT INFORMATION
  Report Type: 
  Country: None (occurrence: None)
  Receive Date: 20080408
  Receipt Date: 20080328
  Transmission Date: 20081010
  Serious: Yes (Other)
  Sender: FDA-Public Use
  Company Number: US-JNJFOC-20080400401

PATIENT
  Sex: Female
  Weight: 58.97 kg

DRUGS (7)
  1. DURAGESIC-100 [Suspect]
     Indication: PAIN
     Route: 062
  2. ANTI-DEPRESSANTS [Suspect]
     Indication: DEPRESSION
     Route: 048
  3. LEVBID [Concomitant]
     Indication: IRRITABLE BOWEL SYNDROME
     Route: 048
  4. FIBERCON [Concomitant]
     Indication: IRRITABLE BOWEL SYNDROME
     Route: 048
  5. KLONOPIN [Concomitant]
     Indication: ANXIETY
     Route: 048
  6. HYDROCHLOROTHIAZIDE [Concomitant]
     Indication: BLOOD PRESSURE
     Route: 048
  7. ZANTAC [Concomitant]
     Indication: GASTROOESOPHAGEAL REFLUX DISEASE
     Route: 048

REACTIONS (8)
  - APPLICATION SITE RASH [None]
  - BLADDER DISORDER [None]
  - DEPRESSION [None]
  - DYSPNOEA [None]
  - HYPOAESTHESIA [None]
  - INAPPROPRIATE SCHEDULE OF DRUG ADMINISTRATION [None]
  - NERVE DEGENERATION [None]
  - RETINAL DEGENERATION [None]
